FAERS Safety Report 6404468-0 (Version None)
Quarter: 2009Q4

REPORT INFORMATION
  Report Type: 
  Country: None (occurrence: None)
  Receive Date: 20091016
  Receipt Date: 20090819
  Transmission Date: 20100525
  Serious: No
  Sender: FDA-Public Use
  Company Number: US-ALEXION-A200900703

PATIENT
  Sex: Female

DRUGS (2)
  1. SOLIRIS [Suspect]
     Indication: PAROXYSMAL NOCTURNAL HAEMOGLOBINURIA
     Dosage: 600 MG, WHILE ENROLLED IN TRIAL
     Route: 042
     Dates: start: 20050901
  2. SOLIRIS [Suspect]
     Dosage: 900 MG, Q 2 WEEKS (FIRST 900 MG COMMERCIAL DOSE)
     Route: 042
     Dates: start: 20070522

REACTIONS (3)
  - COUGH [None]
  - NASOPHARYNGITIS [None]
  - SINUS CONGESTION [None]
